FAERS Safety Report 5387000-2 (Version None)
Quarter: 2007Q3

REPORT INFORMATION
  Report Type: 
  Country: None (occurrence: None)
  Receive Date: 20070713
  Receipt Date: 20070706
  Transmission Date: 20080115
  Serious: Yes (Other)
  Sender: FDA-Public Use
  Company Number: US-PFIZER INC-2007055762

PATIENT

DRUGS (2)
  1. LIPITOR [Suspect]
     Indication: PROPHYLAXIS
  2. PLAVIX [Concomitant]

REACTIONS (2)
  - PERIPHERAL SENSORY NEUROPATHY [None]
  - STENT PLACEMENT [None]
